FAERS Safety Report 23321269 (Version 1)
Quarter: 2023Q4

REPORT INFORMATION
  Report Type: Spontaneous
  Country: None (occurrence: CA)
  Receive Date: 20231220
  Receipt Date: 20231220
  Transmission Date: 20240110
  Serious: Yes (Other)
  Sender: FDA-Public Use
  Company Number: CA-B.Braun Medical Inc.-2149599

PATIENT
  Age: 65 Year
  Sex: Female

DRUGS (20)
  1. CALCIUM GLUCONATE [Suspect]
     Active Substance: CALCIUM GLUCONATE
  2. ASPIRIN [Suspect]
     Active Substance: ASPIRIN
  3. ADVAIR HFA [Suspect]
     Active Substance: FLUTICASONE PROPIONATE\SALMETEROL XINAFOATE
  4. AMLODIPINE BESYLATE [Suspect]
     Active Substance: AMLODIPINE BESYLATE
  5. BECLOMETHASONE [Suspect]
     Active Substance: BECLOMETHASONE
  6. CIPROFLOXACIN HYDROCHLORIDE [Suspect]
     Active Substance: CIPROFLOXACIN HYDROCHLORIDE
  7. CLONAZEPAM [Suspect]
     Active Substance: CLONAZEPAM
  8. ERGOCALCIFEROL [Suspect]
     Active Substance: ERGOCALCIFEROL
  9. FOLATE SODIUM [Suspect]
     Active Substance: FOLATE SODIUM
  10. HYDROMORPHONE HYDROCHLORIDE [Suspect]
     Active Substance: HYDROMORPHONE HYDROCHLORIDE
  11. MOXIFLOXACIN HYDROCHLORIDE [Suspect]
     Active Substance: MOXIFLOXACIN HYDROCHLORIDE\MOXIFLOXACIN HYDROCHLORIDE MONOHYDRATE
  12. OMALIZUMAB [Suspect]
     Active Substance: OMALIZUMAB
  13. PREDNISONE [Suspect]
     Active Substance: PREDNISONE
  14. RISEDRONATE SODIUM [Suspect]
     Active Substance: RISEDRONATE SODIUM
  15. RITUXIMAB [Suspect]
     Active Substance: RITUXIMAB
  16. ROPIVACAINE HYDROCHLORIDE [Suspect]
     Active Substance: ROPIVACAINE HYDROCHLORIDE
  17. ROSUVASTATIN CALCIUM [Suspect]
     Active Substance: ROSUVASTATIN CALCIUM
  18. SINGULAIR [Suspect]
     Active Substance: MONTELUKAST SODIUM
  19. THEOPHYLLINE [Suspect]
     Active Substance: THEOPHYLLINE
  20. TRAMADOL HYDROCHLORIDE [Suspect]
     Active Substance: TRAMADOL HYDROCHLORIDE

REACTIONS (7)
  - Asthma [None]
  - Drug hypersensitivity [None]
  - Dyspnoea [None]
  - Oedema [None]
  - Pneumonia [None]
  - Vomiting [None]
  - Wheezing [None]
